FAERS Safety Report 5801929-X (Version None)
Quarter: 2008Q3

REPORT INFORMATION
  Report Type: 
  Country: None (occurrence: None)
  Receive Date: 20080707
  Receipt Date: 20080630
  Transmission Date: 20090109
  Serious: Yes (Death)
  Sender: FDA-Public Use
  Company Number: JP-ASTRAZENECA-2008SE03336

PATIENT
  Age: 78 Year
  Sex: Male

DRUGS (6)
  1. BLOPRESS [Suspect]
     Indication: CARDIAC FAILURE CHRONIC
     Route: 048
     Dates: start: 20070219
  2. TAKEPRON [Concomitant]
     Indication: GASTRIC ULCER
     Route: 048
  3. CALBLOCK [Concomitant]
     Indication: CARDIAC FAILURE CHRONIC
     Route: 048
  4. LANIRAPID [Concomitant]
     Indication: CARDIAC FAILURE CHRONIC
     Route: 048
  5. LASIX [Concomitant]
     Indication: CARDIAC FAILURE CHRONIC
     Route: 048
  6. ALDACTONE [Concomitant]
     Indication: CARDIAC FAILURE CHRONIC
     Route: 048

REACTIONS (1)
  - SUDDEN DEATH [None]
